FAERS Safety Report 13748672 (Version 2)
Quarter: 2017Q3

REPORT INFORMATION
  Report Type: Report from Study
  Country: None (occurrence: CA)
  Receive Date: 20170713
  Receipt Date: 20170829
  Transmission Date: 20171127
  Serious: Yes (Hospitalization, Other)
  Sender: FDA-Public Use
  Company Number: CA-ABBVIE-17K-028-2036626-00

PATIENT
  Sex: Male

DRUGS (1)
  1. HUMIRA [Suspect]
     Active Substance: ADALIMUMAB
     Indication: CROHN^S DISEASE
     Route: 058
     Dates: start: 20130809, end: 201704

REACTIONS (7)
  - Hernia [Not Recovered/Not Resolved]
  - Limb injury [Unknown]
  - Fistula [Not Recovered/Not Resolved]
  - Streptococcal infection [Unknown]
  - Impaired healing [Not Recovered/Not Resolved]
  - Injection site injury [Unknown]
  - Intestinal obstruction [Recovered/Resolved]

NARRATIVE: CASE EVENT DATE: 2017
